FAERS Safety Report 10677802 (Version 2)
Quarter: 2015Q1

REPORT INFORMATION
  Report Type: Spontaneous
  Country: TW (occurrence: TW)
  Receive Date: 20141229
  Receipt Date: 20150105
  Transmission Date: 20150720
  Serious: Yes (Other)
  Sender: FDA-Public Use
  Company Number: TW-AMGEN-TWNSP2014100894

PATIENT
  Age: 32 Year
  Sex: Male

DRUGS (2)
  1. ENBREL [Suspect]
     Active Substance: ETANERCEPT
     Dosage: 25 MG, WEEKLY
     Route: 058
  2. ENBREL [Suspect]
     Active Substance: ETANERCEPT
     Indication: ANKYLOSING SPONDYLITIS
     Dosage: 25 MG, BIW
     Route: 058
     Dates: start: 20100615

REACTIONS (2)
  - C-reactive protein increased [Unknown]
  - Ankylosing spondylitis [Unknown]

NARRATIVE: CASE EVENT DATE: 2014
